FAERS Safety Report 6646529-7 (Version None)
Quarter: 2010Q1

REPORT INFORMATION
  Report Type: 
  Country: None (occurrence: None)
  Receive Date: 20100323
  Receipt Date: 20100315
  Transmission Date: 20100710
  Serious: Yes (Hospitalization)
  Sender: FDA-Public Use
  Company Number: CH-MILLENNIUM PHARMACEUTICALS, INC.-2009-04815

PATIENT

DRUGS (7)
  1. VELCADE [Suspect]
     Indication: MULTIPLE MYELOMA
     Dosage: 1.8 MG, UNK
     Route: 042
     Dates: start: 20090924, end: 20091106
  2. THALIDOMIDE [Suspect]
     Indication: MULTIPLE MYELOMA
     Dosage: 100 MG, UNK
     Route: 048
     Dates: start: 20090924, end: 20091110
  3. DEXAMETHASONE [Suspect]
     Indication: MULTIPLE MYELOMA
     Dosage: 40 MG, UNK
     Route: 048
     Dates: start: 20090924, end: 20091030
  4. PANTOPRAZOLE [Concomitant]
     Dosage: 40 MG, UNK
     Route: 048
     Dates: start: 20090924
  5. BACTRIM DS [Concomitant]
     Dosage: 800 MG, UNK
     Route: 048
  6. ZYLORIC                            /00003301/ [Concomitant]
     Dosage: 100 MG, UNK
     Route: 048
     Dates: end: 20091111
  7. DAFALGAN                           /00020001/ [Concomitant]
     Dosage: 2 G, UNK
     Route: 048
     Dates: start: 20091007

REACTIONS (4)
  - BLOOD CREATININE INCREASED [None]
  - BONE PAIN [None]
  - PAIN [None]
  - PLATELET COUNT DECREASED [None]
